FAERS Safety Report 19249787 (Version 2)
Quarter: 2021Q3

REPORT INFORMATION
  Report Type: Report from Study
  Country: CA (occurrence: CA)
  Receive Date: 20210513
  Receipt Date: 20210713
  Transmission Date: 20211014
  Serious: Yes (Other)
  Sender: FDA-Public Use
  Company Number: CA-JNJFOC-20210517064

PATIENT
  Age: 21 Year
  Sex: Female
  Weight: 94.8 kg

DRUGS (1)
  1. REMICADE [Suspect]
     Active Substance: INFLIXIMAB
     Indication: COLITIS ULCERATIVE
     Dosage: THE PATIENT RECEIVED 32ND INFLIXIMAB INFUSION FOR DOSE OF 800 MG ON 08?MAY?2021
     Route: 042
     Dates: start: 20161118

REACTIONS (3)
  - Breast mass [Recovered/Resolved]
  - Frequent bowel movements [Recovered/Resolved]
  - Mammoplasty [Recovered/Resolved]

NARRATIVE: CASE EVENT DATE: 202103
